FAERS Safety Report 4999305-5 (Version None)
Quarter: 2006Q2

REPORT INFORMATION
  Report Type: 
  Country: None (occurrence: None)
  Receive Date: 20060509
  Receipt Date: 20060509
  Transmission Date: 20061013
  Serious: Yes (Life-Threatening)
  Sender: FDA-Public Use
  Company Number: None

PATIENT
  Age: 43 Year
  Sex: Male
  Weight: 84.8226 kg

DRUGS (2)
  1. RAPTIVA [Suspect]
     Indication: PSORIASIS
  2. HUMIRA [Suspect]
     Indication: PSORIASIS
     Dates: start: 20060201, end: 20060325

REACTIONS (5)
  - CRYPTOCOCCOSIS [None]
  - CULTURE POSITIVE [None]
  - NODULE [None]
  - RASH [None]
  - VIRAL UPPER RESPIRATORY TRACT INFECTION [None]
